FAERS Safety Report 11540055 (Version 1)
Quarter: 2015Q3

REPORT INFORMATION
  Report Type: Spontaneous
  Country: US (occurrence: US)
  Receive Date: 20150923
  Receipt Date: 20150923
  Transmission Date: 20151125
  Serious: Yes (Death)
  Sender: FDA-Public Use
  Company Number: US-PFIZER INC-2015314440

PATIENT
  Sex: Female

DRUGS (2)
  1. RAPAMUNE [Suspect]
     Active Substance: SIROLIMUS
     Dosage: UNK
  2. VFEND [Suspect]
     Active Substance: VORICONAZOLE
     Dosage: UNK

REACTIONS (1)
  - Death [Fatal]
